FAERS Safety Report 15188765 (Version 1)
Quarter: 2018Q3

REPORT INFORMATION
  Report Type: Spontaneous
  Country: US (occurrence: US)
  Receive Date: 20180625
  Receipt Date: 20180625
  Transmission Date: 20181010
  Serious: Yes (Hospitalization)
  Sender: FDA-Public Use
  Company Number: None

PATIENT
  Age: 63 Year
  Sex: Female

DRUGS (13)
  1. REBIF [Suspect]
     Active Substance: INTERFERON BETA-1A
     Indication: MULTIPLE SCLEROSIS
     Route: 058
     Dates: start: 20180322
  2. CRANBERRY. [Concomitant]
     Active Substance: CRANBERRY
     Dates: start: 20180622
  3. OMEPRAZOLE. [Concomitant]
     Active Substance: OMEPRAZOLE
     Dates: start: 20180622
  4. CAL MAG ZINC [Concomitant]
     Dates: start: 20180622
  5. METOPROLOL TARTRATE. [Concomitant]
     Active Substance: METOPROLOL TARTRATE
     Dates: start: 20180622
  6. MULTIVITAMIN [Concomitant]
     Active Substance: VITAMINS
     Dates: start: 20180622
  7. VITAMIN B12 [Concomitant]
     Active Substance: CYANOCOBALAMIN
     Dates: start: 20180622
  8. VITAMIN D [Concomitant]
     Active Substance: CHOLECALCIFEROL
     Dates: start: 20180622
  9. ASPIRIN. [Concomitant]
     Active Substance: ASPIRIN
     Dates: start: 20180622
  10. LAMICTAL [Concomitant]
     Active Substance: LAMOTRIGINE
     Dates: start: 20180622
  11. TRAMADOL. [Concomitant]
     Active Substance: TRAMADOL
     Dates: start: 20180622
  12. KLONOPIN [Concomitant]
     Active Substance: CLONAZEPAM
     Dates: start: 20180622
  13. XANAX [Concomitant]
     Active Substance: ALPRAZOLAM
     Dates: start: 20180622

REACTIONS (8)
  - Fatigue [None]
  - Fall [None]
  - Nocturia [None]
  - Anxiety [None]
  - Urinary tract infection [None]
  - Stress [None]
  - Migraine [None]
  - Throat tightness [None]
